FAERS Safety Report 5163273-6 (Version None)
Quarter: 2006Q4

REPORT INFORMATION
  Report Type: 
  Country: None (occurrence: None)
  Receive Date: 20061204
  Receipt Date: 20061129
  Transmission Date: 20070319
  Serious: Yes (Death)
  Sender: FDA-Public Use
  Company Number: PHEH2006US14683

PATIENT
  Age: 53 Year
  Sex: Male

DRUGS (6)
  1. CLOZARIL [Suspect]
     Indication: MANIA
     Dosage: 50 MG, Q8H
     Route: 048
     Dates: start: 20060725, end: 20060725
  2. HALDOL [Concomitant]
  3. LITHIUM CARBONATE [Concomitant]
  4. SYNTHROID [Concomitant]
  5. ATENOLOL [Concomitant]
  6. LIPITOR [Concomitant]

REACTIONS (2)
  - SLEEP APNOEA SYNDROME [None]
  - VENTRICULAR FIBRILLATION [None]
